FAERS Safety Report 4941634-5 (Version None)
Quarter: 2006Q1

REPORT INFORMATION
  Report Type: 
  Country: None (occurrence: None)
  Receive Date: 20060307
  Receipt Date: 20060302
  Transmission Date: 20060701
  Serious: Yes (Disabling)
  Sender: FDA-Public Use
  Company Number: TCI2003A04644

PATIENT
  Age: 51 Year
  Sex: Female

DRUGS (9)
  1. LEUPROLIDE ACETATE [Suspect]
     Indication: BREAST CANCER
     Dosage: TAP-144-SR SUBCUTANEOUS 3/75 MG/4 W (1 IN 28 D)
     Route: 058
     Dates: start: 20020111, end: 20031017
  2. NOLVADEX [Suspect]
     Indication: POSTOPERATIVE CARE
     Dosage: 20 MG (20 MG, 1 IN 1 D) PER ORAL
     Route: 048
     Dates: start: 20020111, end: 20031222
  3. DOGMATYL (SULPIRIDE) (CAPSULES) [Concomitant]
  4. EBASTEL (EBASTINE) (TABLETS) [Concomitant]
  5. SHIN CHUGAI ICHYOUYAKU(TABLETS)SUCRALFATE TABLETS [Concomitant]
  6. TAC EVE (S. TAC EVE) (TABLETS) [Concomitant]
  7. COR TYZINE (TETRYZOLINE HYDROCHLORIDE/PREDNISOLONE) (NASAL DROPS (INCL [Concomitant]
  8. PL (PL GRAN, ) (POWDER) [Concomitant]
  9. NAZAL (CHLORPHENAMINE MALEATE) (NASAL DROPS (INCLUDING NASAL SPRAY) [Concomitant]

REACTIONS (6)
  - DRUG INTERACTION [None]
  - GLAUCOMA [None]
  - MACULAR DEGENERATION [None]
  - RETINAL DEGENERATION [None]
  - RETINAL DISORDER [None]
  - XANTHOPSIA [None]
